FAERS Safety Report 10792307 (Version 2)
Quarter: 2015Q1

REPORT INFORMATION
  Report Type: Spontaneous
  Country: DE (occurrence: DE)
  Receive Date: 20150213
  Receipt Date: 20150213
  Transmission Date: 20150721
  Serious: Yes (Hospitalization, Other)
  Sender: FDA-Public Use
  Company Number: DE-UCBSA-2015003561

PATIENT
  Age: 21 Year
  Sex: Male
  Weight: 31 kg

DRUGS (5)
  1. LUMINALETTEN [Suspect]
     Active Substance: PHENOBARBITAL
     Indication: PRODUCT USED FOR UNKNOWN INDICATION
     Dosage: STRENGTH: 15, 1 TABLET, TOTAL AMOUNT: 15 MG
     Route: 048
     Dates: start: 20150202, end: 20150202
  2. ERGENYL [Suspect]
     Active Substance: VALPROIC ACID
     Indication: PRODUCT USED FOR UNKNOWN INDICATION
     Dosage: STRENGTH: 500, 2 TABLET, TOTAL AMOUNT: 1000 MG
     Route: 048
     Dates: start: 20150202, end: 20150202
  3. KEPPRA [Suspect]
     Active Substance: LEVETIRACETAM
     Indication: PRODUCT USED FOR UNKNOWN INDICATION
     Dosage: STRENGTH:1000 MG, 1.5 TABLET, TOTAL AMOUNT: 1500 MG
     Route: 048
     Dates: start: 20150202, end: 20150202
  4. PHENHYDAN [Suspect]
     Active Substance: PHENYTOIN
     Indication: PRODUCT USED FOR UNKNOWN INDICATION
     Dosage: 1 TABLET
     Route: 048
     Dates: start: 20150202, end: 20150202
  5. VIMPAT [Suspect]
     Active Substance: LACOSAMIDE
     Indication: PRODUCT USED FOR UNKNOWN INDICATION
     Dosage: STRENGTH: 100 MG, 1 TABLET, TOTAL AMOUNT:100 MG
     Route: 048
     Dates: start: 20150202, end: 20150202

REACTIONS (2)
  - Wrong patient received medication [None]
  - Accidental exposure to product [Unknown]

NARRATIVE: CASE EVENT DATE: 20150202
